FAERS Safety Report 21392624 (Version 1)
Quarter: 2022Q3

REPORT INFORMATION
  Report Type: Report from Study
  Country: US (occurrence: US)
  Receive Date: 20220929
  Receipt Date: 20220929
  Transmission Date: 20221026
  Serious: Yes (Hospitalization, Other)
  Sender: FDA-Public Use
  Company Number: US-ABBVIE-4132731

PATIENT
  Age: 72 Year
  Sex: Female

DRUGS (14)
  1. RINVOQ [Suspect]
     Active Substance: UPADACITINIB
     Indication: Rheumatoid arthritis
     Route: 048
  2. POTASSIUM CH TBC [Concomitant]
     Indication: Product used for unknown indication
     Dosage: 10MEQ
  3. METOPROLOL  S TB2 [Concomitant]
     Indication: Product used for unknown indication
  4. HUMALOG SOL [Concomitant]
     Indication: Product used for unknown indication
     Dosage: 100UNIT/ML
  5. MONTELUKAST SODIUM [Concomitant]
     Active Substance: MONTELUKAST SODIUM
     Indication: Product used for unknown indication
  6. TRADJENTA TAB [Concomitant]
     Indication: Product used for unknown indication
  7. TRESIBA FLEX SOP [Concomitant]
     Indication: Product used for unknown indication
     Dosage: 100UNIT
  8. CETIRIZINE H TAB [Concomitant]
     Indication: Product used for unknown indication
  9. PREMARIN CRE [Concomitant]
     Indication: Product used for unknown indication
     Dosage: 0.625 G/GM
  10. FAMOTIDINE TAB [Concomitant]
     Indication: Product used for unknown indication
  11. AMLODIPINE B CAP [Concomitant]
     Indication: Product used for unknown indication
     Dosage: 5-40MG
  12. PANTOPRAZOLE TBE [Concomitant]
     Indication: Product used for unknown indication
  13. LYUMJEV KWIK SOP [Concomitant]
     Indication: Product used for unknown indication
     Dosage: 200UNIT
  14. FUROSEMIDE TAB [Concomitant]
     Indication: Product used for unknown indication

REACTIONS (6)
  - Loss of consciousness [Unknown]
  - Joint stiffness [Unknown]
  - Cardiac failure [Unknown]
  - Liver disorder [Unknown]
  - Musculoskeletal stiffness [Unknown]
  - Renal failure [Unknown]

NARRATIVE: CASE EVENT DATE: 20220701
